FAERS Safety Report 25129359 (Version 2)
Quarter: 2025Q2

REPORT INFORMATION
  Report Type: Spontaneous
  Country: FR (occurrence: FR)
  Receive Date: 20250327
  Receipt Date: 20250415
  Transmission Date: 20250717
  Serious: Yes (Death, Life-Threatening, Hospitalization, Other)
  Sender: AUROBINDO
  Company Number: FR-MLMSERVICE-20250306-PI392041-00270-1

PATIENT
  Age: 76 Year
  Sex: Male

DRUGS (2)
  1. PREDNISOLONE [Suspect]
     Active Substance: PREDNISOLONE
     Indication: COVID-19
     Route: 065
     Dates: start: 202212
  2. DEXAMETHASONE [Suspect]
     Active Substance: DEXAMETHASONE
     Indication: COVID-19
     Route: 065
     Dates: start: 202212

REACTIONS (7)
  - Cardio-respiratory arrest [Fatal]
  - Cryptococcosis [Unknown]
  - Staphylococcal sepsis [Unknown]
  - Renal failure [Recovering/Resolving]
  - Multisystem inflammatory syndrome in adults [Recovering/Resolving]
  - Disseminated cryptococcosis [Unknown]
  - Bradycardia [Unknown]

NARRATIVE: CASE EVENT DATE: 20220101
